FAERS Safety Report 25871383 (Version 1)
Quarter: 2025Q4

REPORT INFORMATION
  Report Type: Report from Study
  Country: EU (occurrence: EU)
  Receive Date: 20251001
  Receipt Date: 20251001
  Transmission Date: 20260118
  Serious: Yes (Other)
  Sender: MYLAN
  Company Number: EU-GSK-FR2025GSK027079

PATIENT
  Age: 71 Year
  Sex: Female
  Weight: 98 kg

DRUGS (12)
  1. PACLITAXEL [Suspect]
     Active Substance: PACLITAXEL
     Indication: Cervix neoplasm
     Dosage: UNK
  2. PACLITAXEL [Suspect]
     Active Substance: PACLITAXEL
     Indication: Endometrial cancer recurrent
     Dosage: UNK
     Route: 065
  3. PACLITAXEL [Suspect]
     Active Substance: PACLITAXEL
     Dosage: UNK
     Route: 065
  4. PACLITAXEL [Suspect]
     Active Substance: PACLITAXEL
     Dosage: UNK
  5. CARBOPLATIN [Suspect]
     Active Substance: CARBOPLATIN
     Indication: Cervix neoplasm
     Dosage: UNK
  6. CARBOPLATIN [Suspect]
     Active Substance: CARBOPLATIN
     Indication: Endometrial cancer recurrent
     Dosage: UNK
     Route: 065
  7. CARBOPLATIN [Suspect]
     Active Substance: CARBOPLATIN
     Dosage: UNK
     Route: 065
  8. CARBOPLATIN [Suspect]
     Active Substance: CARBOPLATIN
     Dosage: UNK
  9. DOSTARLIMAB [Suspect]
     Active Substance: DOSTARLIMAB
     Indication: Cervix neoplasm
     Dosage: 500 MILLIGRAM, Q3W,(500MG / 21 DAY)
     Dates: start: 20250124
  10. DOSTARLIMAB [Suspect]
     Active Substance: DOSTARLIMAB
     Indication: Endometrial cancer recurrent
     Dosage: 500 MILLIGRAM, Q3W,(500MG / 21 DAY)
     Route: 042
     Dates: start: 20250124
  11. DOSTARLIMAB [Suspect]
     Active Substance: DOSTARLIMAB
     Dosage: 500 MILLIGRAM, Q3W,(500MG / 21 DAY)
     Route: 042
     Dates: start: 20250124
  12. DOSTARLIMAB [Suspect]
     Active Substance: DOSTARLIMAB
     Dosage: 500 MILLIGRAM, Q3W,(500MG / 21 DAY)
     Dates: start: 20250124

REACTIONS (4)
  - Neutropenia [Recovered/Resolved]
  - Malignant neoplasm progression [Unknown]
  - Anaemia [Recovered/Resolved]
  - Incorrect dose administered [Unknown]

NARRATIVE: CASE EVENT DATE: 20250129
